FAERS Safety Report 25842110 (Version 1)
Quarter: 2025Q3

REPORT INFORMATION
  Report Type: Spontaneous
  Country: JP (occurrence: JP)
  Receive Date: 20250924
  Receipt Date: 20250924
  Transmission Date: 20251020
  Serious: Yes (Death)
  Sender: BAUSCH AND LOMB
  Company Number: JP-BAUSCH-BH-2025-017836

PATIENT

DRUGS (1)
  1. BRODALUMAB [Suspect]
     Active Substance: BRODALUMAB
     Indication: Product used for unknown indication
     Route: 058
     Dates: start: 2023, end: 2023

REACTIONS (2)
  - Illness [Fatal]
  - Marasmus [Fatal]

NARRATIVE: CASE EVENT DATE: 20230101
